FAERS Safety Report 7688622-6 (Version None)
Quarter: 2011Q3

REPORT INFORMATION
  Report Type: 
  Country: None (occurrence: None)
  Receive Date: 20110817
  Receipt Date: 20110808
  Transmission Date: 20111222
  Serious: Yes (Other)
  Sender: FDA-Public Use
  Company Number: US-JNJFOC-20110804518

PATIENT
  Age: 56 Year
  Sex: Male

DRUGS (8)
  1. LUPRON [Concomitant]
     Route: 065
  2. ZYTIGA [Suspect]
     Indication: PROSTATE CANCER METASTATIC
     Route: 065
     Dates: start: 20110712
  3. OXYCODONE HCL [Concomitant]
     Indication: BACK PAIN
     Route: 065
  4. TERAZOSIN HCL [Concomitant]
     Route: 065
  5. ZOLEDRONIC ACID [Concomitant]
     Route: 065
  6. ZYTIGA [Suspect]
     Route: 065
     Dates: start: 20110601
  7. PREDNISONE [Suspect]
     Indication: PROSTATE CANCER METASTATIC
     Route: 065
     Dates: start: 20110601
  8. DOCUSATE SODIUM [Concomitant]
     Route: 065

REACTIONS (2)
  - ABDOMINAL DISCOMFORT [None]
  - DYSPEPSIA [None]
